FAERS Safety Report 10229064 (Version 2)
Quarter: 2014Q3

REPORT INFORMATION
  Report Type: Spontaneous
  Country: US (occurrence: US)
  Receive Date: 20140610
  Receipt Date: 20140807
  Transmission Date: 20150326
  Serious: No
  Sender: FDA-Public Use
  Company Number: US-009507513-1405USA015175

PATIENT
  Age: 16 Year
  Sex: Female
  Weight: 88.44 kg

DRUGS (1)
  1. IMPLANON [Suspect]
     Active Substance: ETONOGESTREL
     Dosage: 1 ROD
     Route: 030
     Dates: start: 201008, end: 20140611

REACTIONS (6)
  - Incorrect drug administration duration [Unknown]
  - Incorrect route of drug administration [Recovered/Resolved]
  - Device deployment issue [Recovered/Resolved]
  - Weight increased [Unknown]
  - Device dislocation [Recovered/Resolved]
  - Medical device complication [Recovered/Resolved]

NARRATIVE: CASE EVENT DATE: 201008
